FAERS Safety Report 16952578 (Version 1)
Quarter: 2019Q4

REPORT INFORMATION
  Report Type: Spontaneous
  Country: US (occurrence: US)
  Receive Date: 20190904
  Receipt Date: 20190904
  Transmission Date: 20200122
  Serious: No
  Sender: FDA-Public Use
  Company Number: None

PATIENT
  Age: 52 Year
  Sex: Female
  Weight: 68.04 kg

DRUGS (3)
  1. SIMPONI [Suspect]
     Active Substance: GOLIMUMAB
     Indication: UVEITIS
     Dosage: ?          OTHER FREQUENCY:EVERY4WEEKSASDIR;?
     Route: 058
     Dates: start: 201907
  2. SIMPONI [Suspect]
     Active Substance: GOLIMUMAB
     Indication: IRIDOCYCLITIS
     Dosage: ?          OTHER FREQUENCY:EVERY4WEEKSASDIR;?
     Route: 058
     Dates: start: 201907
  3. SIMPONI [Suspect]
     Active Substance: GOLIMUMAB
     Indication: ANKYLOSING SPONDYLITIS
     Dosage: ?          OTHER FREQUENCY:EVERY4WEEKSASDIR;?
     Route: 058
     Dates: start: 201907

REACTIONS (2)
  - Blood pressure increased [None]
  - Nausea [None]
